FAERS Safety Report 5970033-2 (Version None)
Quarter: 2008Q4

REPORT INFORMATION
  Report Type: 
  Country: None (occurrence: None)
  Receive Date: 20081126
  Receipt Date: 20081121
  Transmission Date: 20090506
  Serious: Yes (Other)
  Sender: FDA-Public Use
  Company Number: BE-MERCK-0810BEL00006

PATIENT
  Age: 76 Year
  Sex: Female

DRUGS (2)
  1. VYTORIN [Suspect]
     Indication: HYPERCHOLESTEROLAEMIA
     Route: 048
     Dates: end: 20080701
  2. WARFARIN SODIUM [Concomitant]
     Route: 048
     Dates: end: 20080701

REACTIONS (3)
  - AUTOIMMUNE HEPATITIS [None]
  - BLOOD URINE [None]
  - INTERNATIONAL NORMALISED RATIO INCREASED [None]
